FAERS Safety Report 4420799-8 (Version None)
Quarter: 2004Q3

REPORT INFORMATION
  Report Type: 
  Country: None (occurrence: None)
  Receive Date: 20040809
  Receipt Date: 20040602
  Transmission Date: 20050211
  Serious: No
  Sender: FDA-Public Use
  Company Number: US-GLAXOSMITHKLINE-A0513053A

PATIENT
  Sex: Female

DRUGS (6)
  1. PAXIL [Suspect]
     Indication: DEPRESSION
     Dosage: 10MG PER DAY
     Route: 048
  2. WELLBUTRIN XL [Suspect]
     Indication: DEPRESSION
     Dosage: 150MG PER DAY
     Route: 048
     Dates: start: 20040501
  3. LIPITOR [Concomitant]
  4. PAXIL [Concomitant]
  5. TENUATE [Concomitant]
  6. XANAX [Concomitant]

REACTIONS (7)
  - CONSTIPATION [None]
  - DIARRHOEA [None]
  - DRUG INEFFECTIVE [None]
  - HOT FLUSH [None]
  - INSOMNIA [None]
  - NIGHTMARE [None]
  - TENSION [None]
